FAERS Safety Report 22877826 (Version 5)
Quarter: 2023Q4

REPORT INFORMATION
  Report Type: Report from Study
  Country: ES (occurrence: ES)
  Receive Date: 20230829
  Receipt Date: 20231106
  Transmission Date: 20240110
  Serious: Yes (Hospitalization)
  Sender: FDA-Public Use
  Company Number: ES-SA-0002911760

PATIENT
  Age: 79 Year
  Sex: Male
  Weight: 81.7 kg

DRUGS (22)
  1. ISATUXIMAB [Suspect]
     Active Substance: ISATUXIMAB
     Indication: Plasma cell myeloma refractory
     Dosage: 900 MG, INFUSION RATE (ML/H): 25, INFUSION RATE (ML/H):  150
     Route: 042
     Dates: start: 20230515, end: 20230515
  2. ISATUXIMAB [Suspect]
     Active Substance: ISATUXIMAB
     Dosage: 900 MG, INTENDED DOSE (MG/KG): 10, INFUSION RATE (ML/H): 200
     Route: 042
     Dates: start: 20230817, end: 20230817
  3. POMALIDOMIDE [Suspect]
     Active Substance: POMALIDOMIDE
     Indication: Plasma cell myeloma refractory
     Dosage: 4 MG
     Route: 048
     Dates: start: 20230515, end: 20230604
  4. POMALIDOMIDE [Suspect]
     Active Substance: POMALIDOMIDE
     Dosage: 4 MG, QD
     Dates: start: 20230817, end: 20230817
  5. DEXAMETHASONE [Suspect]
     Active Substance: DEXAMETHASONE
     Indication: Plasma cell myeloma refractory
     Dosage: 20 MG
     Route: 048
     Dates: start: 20230515, end: 20230515
  6. DEXAMETHASONE [Suspect]
     Active Substance: DEXAMETHASONE
     Dosage: 20 MG, QD
     Route: 048
     Dates: start: 20230817, end: 20230817
  7. DEXAMETHASONE [Suspect]
     Active Substance: DEXAMETHASONE
     Dosage: 20 MG, QD
     Route: 048
     Dates: start: 20230824, end: 20230824
  8. BISOPROLOL [Concomitant]
     Active Substance: BISOPROLOL\BISOPROLOL FUMARATE
     Indication: Prophylaxis
     Dosage: UNK
     Route: 048
  9. ELIQUIS [Concomitant]
     Active Substance: APIXABAN
     Indication: Prophylaxis
     Dosage: UNK
     Route: 048
  10. TRAMADOL [Concomitant]
     Active Substance: TRAMADOL\TRAMADOL HYDROCHLORIDE
     Indication: Prophylaxis
     Dosage: UNK
     Route: 048
  11. ACETAMINOPHEN [Concomitant]
     Active Substance: ACETAMINOPHEN
     Indication: Prophylaxis
     Dosage: 1000 MG, QD
     Route: 048
     Dates: start: 20230817, end: 20230817
  12. ACETAMINOPHEN [Concomitant]
     Active Substance: ACETAMINOPHEN
     Dosage: UNK
     Route: 048
  13. DEXCHLORPHENIRAMINE [Concomitant]
     Active Substance: DEXCHLORPHENIRAMINE
     Indication: Prophylaxis
     Dosage: 2 MG, QD
     Route: 048
     Dates: start: 20230817, end: 20230817
  14. ELTROMBOPAG [Concomitant]
     Active Substance: ELTROMBOPAG
     Dosage: UNK
     Route: 048
  15. FENTANYL [Concomitant]
     Active Substance: FENTANYL\FENTANYL CITRATE
     Dosage: UNK
     Route: 003
  16. HUMAN RED BLOOD CELL [Concomitant]
     Active Substance: HUMAN RED BLOOD CELL
     Indication: Prophylaxis
     Dosage: UNK
     Route: 042
     Dates: start: 20230826, end: 20230826
  17. HUMAN RED BLOOD CELL [Concomitant]
     Active Substance: HUMAN RED BLOOD CELL
     Dosage: UNK
     Route: 042
     Dates: start: 20230811, end: 20230811
  18. ACYCLOVIR [Concomitant]
     Active Substance: ACYCLOVIR
     Indication: Prophylaxis
     Dosage: UNK
     Route: 048
  19. LOSARTAN [Concomitant]
     Active Substance: LOSARTAN
     Dosage: UNK
     Route: 048
  20. LACEROL [Concomitant]
     Dosage: UNK
     Route: 048
  21. DUTASTERIDE\TAMSULOSIN [Concomitant]
     Active Substance: DUTASTERIDE\TAMSULOSIN
     Indication: Prophylaxis
     Dosage: UNK
     Route: 048
     Dates: start: 20190819
  22. APIXABAN [Concomitant]
     Active Substance: APIXABAN
     Indication: Prophylaxis
     Dosage: UNK
     Route: 048
     Dates: start: 20210901, end: 20230825

REACTIONS (1)
  - Liver abscess [Recovered/Resolved]

NARRATIVE: CASE EVENT DATE: 20230824
